FAERS Safety Report 10196294 (Version 3)
Quarter: 2014Q2

REPORT INFORMATION
  Report Type: Spontaneous
  Country: JP (occurrence: JP)
  Receive Date: 20140527
  Receipt Date: 20140611
  Transmission Date: 20141212
  Serious: Yes (Other)
  Sender: FDA-Public Use
  Company Number: JP-JNJFOC-20140514616

PATIENT
  Age: 77 Year
  Sex: Female

DRUGS (7)
  1. TRAMCET [Suspect]
     Indication: PRODUCT USED FOR UNKNOWN INDICATION
     Route: 048
     Dates: start: 20131209
  2. NEUROTROPIN [Concomitant]
     Route: 048
  3. MECOBALAMIN [Concomitant]
     Route: 048
  4. CELECOX [Concomitant]
     Route: 048
  5. LOXONIN [Concomitant]
     Route: 062
  6. SPIRONOLACTONE [Concomitant]
     Route: 048
     Dates: start: 201403
  7. DIOVAN [Concomitant]
     Route: 048

REACTIONS (2)
  - Deafness [Unknown]
  - Dizziness [Unknown]
